FAERS Safety Report 17100548 (Version 1)
Quarter: 2019Q4

REPORT INFORMATION
  Report Type: Spontaneous
  Country: FR (occurrence: FR)
  Receive Date: 20191202
  Receipt Date: 20191202
  Transmission Date: 20200122
  Serious: Yes (Other)
  Sender: FDA-Public Use
  Company Number: FR-CELGENEUS-FRA-20191109807

PATIENT
  Age: 73 Year
  Sex: Male

DRUGS (9)
  1. REVLIMID [Suspect]
     Active Substance: LENALIDOMIDE
     Indication: SIDEROBLASTIC ANAEMIA
     Dosage: 1 DOSAGE FORMS
     Route: 048
     Dates: start: 20190523, end: 20190705
  2. TAHOR [Concomitant]
     Active Substance: ATORVASTATIN CALCIUM
     Indication: PRODUCT USED FOR UNKNOWN INDICATION
     Route: 048
  3. ASPIRINE PROTECT [Concomitant]
     Active Substance: ASPIRIN
     Indication: BENIGN PROSTATIC HYPERPLASIA
     Dosage: 1 DOSAGE FORMS
     Route: 048
     Dates: start: 2017
  4. SYMBICORT [Concomitant]
     Active Substance: BUDESONIDE\FORMOTEROL FUMARATE DIHYDRATE
     Indication: BRONCHOPNEUMOPATHY
     Dosage: 400/12 MCG
     Route: 055
  5. ARANESP [Concomitant]
     Active Substance: DARBEPOETIN ALFA
     Indication: SIDEROBLASTIC ANAEMIA
     Route: 058
     Dates: start: 201307
  6. COMBODART [Concomitant]
     Active Substance: DUTASTERIDE\TAMSULOSIN
     Indication: BENIGN PROSTATIC HYPERPLASIA
     Route: 048
  7. EXJADE [Concomitant]
     Active Substance: DEFERASIROX
     Indication: SIDEROBLASTIC ANAEMIA
     Dosage: 1080 MILLIGRAM
     Route: 048
     Dates: start: 201901
  8. PERMIXON [Concomitant]
     Active Substance: HERBALS\SAW PALMETTO
     Indication: BENIGN PROSTATIC HYPERPLASIA
     Route: 048
  9. BIPRETERAX [Concomitant]
     Active Substance: INDAPAMIDE\PERINDOPRIL
     Indication: HYPERTENSION
     Dosage: 10/2.5 MG
     Route: 048

REACTIONS (1)
  - Psoriasis [Recovered/Resolved]

NARRATIVE: CASE EVENT DATE: 20190628
